FAERS Safety Report 20784124 (Version 2)
Quarter: 2022Q2

REPORT INFORMATION
  Report Type: Spontaneous
  Country: US (occurrence: None)
  Receive Date: 20220504
  Receipt Date: 20220601
  Transmission Date: 20220721
  Serious: Yes (Other)
  Sender: FDA-Public Use
  Company Number: 2022A164619

PATIENT
  Age: 67 Year
  Sex: Female
  Weight: 71.7 kg

DRUGS (4)
  1. BUDESONIDE\FORMOTEROL\GLYCOPYRRONIUM [Suspect]
     Active Substance: BUDESONIDE\FORMOTEROL\GLYCOPYRRONIUM
     Indication: Asthma
     Dosage: 2 INHALATIONS, TWO TIMES A DAY
     Route: 055
     Dates: start: 202204
  2. SYMBICORT [Suspect]
     Active Substance: BUDESONIDE\FORMOTEROL FUMARATE DIHYDRATE
     Indication: Asthma
     Dosage: 80 UG, 2 INHALATIONS, TWO TIMES A DAY
     Route: 055
     Dates: start: 2014, end: 2016
  3. SYMBICORT [Suspect]
     Active Substance: BUDESONIDE\FORMOTEROL FUMARATE DIHYDRATE
     Indication: Asthma
     Dosage: 160 UG, 2 INHALATIONS, TWO TIMES A DAY
     Route: 055
     Dates: start: 2016, end: 202204
  4. ALMONDS [Concomitant]
     Dates: start: 2021

REACTIONS (7)
  - Anaphylactic reaction [Recovered/Resolved]
  - Asthma [Unknown]
  - Nervousness [Not Recovered/Not Resolved]
  - Intentional product misuse [Recovered/Resolved]
  - Device use issue [Unknown]
  - Device malfunction [Unknown]
  - Product use issue [Unknown]

NARRATIVE: CASE EVENT DATE: 20140101
